FAERS Safety Report 8833533 (Version 1)
Quarter: 2012Q4

REPORT INFORMATION
  Report Type: Report from Study
  Country: GB (occurrence: GB)
  Receive Date: 20121010
  Receipt Date: 20121010
  Transmission Date: 20130627
  Serious: Yes (Hospitalization)
  Sender: FDA-Public Use
  Company Number: GB-ROCHE-1142887

PATIENT
  Age: 80 Year
  Sex: Female
  Weight: 82 kg

DRUGS (2)
  1. ROACTEMRA [Suspect]
     Indication: RHEUMATOID ARTHRITIS
     Dosage: On 11/May/2012, last dose prior to SAE.
     Route: 065
     Dates: start: 20110916
  2. METHOTREXATE [Concomitant]

REACTIONS (1)
  - Intestinal obstruction [Unknown]
